FAERS Safety Report 5262444-8 (Version None)
Quarter: 2007Q1

REPORT INFORMATION
  Report Type: 
  Country: None (occurrence: None)
  Receive Date: 20070308
  Receipt Date: 20070308
  Transmission Date: 20070707
  Serious: Yes (Other)
  Sender: FDA-Public Use
  Company Number: None

PATIENT
  Age: 4 Year
  Sex: Female
  Weight: 15.8759 kg

DRUGS (4)
  1. CHILDRENS TYLENOL ACETAMINOPHEN 80MG CHILDRENS TYLENOL MELTAWAY 2-6YS [Suspect]
     Indication: ARTHRALGIA
     Dosage: 2 TABLETS 2YR OLD CHILD PO 3 TABLETS 4YR OLD CHILD PO
     Route: 048
     Dates: start: 20070303, end: 20070303
  2. CHILDRENS TYLENOL ACETAMINOPHEN 80MG CHILDRENS TYLENOL MELTAWAY 2-6YS [Suspect]
     Indication: HEAD INJURY
     Dosage: 2 TABLETS 2YR OLD CHILD PO 3 TABLETS 4YR OLD CHILD PO
     Route: 048
     Dates: start: 20070303, end: 20070303
  3. CHILDRENS TYLENOL ACETAMINOPHEN 80MG CHILDRENS TYLENOL MELTAWAY 2-6YS [Suspect]
     Indication: ARTHRALGIA
     Dosage: 2 TABLETS 2YR OLD CHILD PO 3 TABLETS 4YR OLD CHILD PO
     Route: 048
     Dates: start: 20070306, end: 20070307
  4. CHILDRENS TYLENOL ACETAMINOPHEN 80MG CHILDRENS TYLENOL MELTAWAY 2-6YS [Suspect]
     Indication: HEAD INJURY
     Dosage: 2 TABLETS 2YR OLD CHILD PO 3 TABLETS 4YR OLD CHILD PO
     Route: 048
     Dates: start: 20070306, end: 20070307

REACTIONS (2)
  - PHARMACEUTICAL PRODUCT COMPLAINT [None]
  - VOMITING [None]
